FAERS Safety Report 10017261 (Version 1)
Quarter: 2014Q1

REPORT INFORMATION
  Report Type: Spontaneous
  Country: US (occurrence: US)
  Receive Date: 20140318
  Receipt Date: 20140318
  Transmission Date: 20141002
  Serious: Yes (Hospitalization)
  Sender: FDA-Public Use
  Company Number: US-BRACCO-010653

PATIENT
  Age: 67 Year
  Sex: Male

DRUGS (5)
  1. PROHANCE [Suspect]
     Indication: NUCLEAR MAGNETIC RESONANCE IMAGING
     Route: 042
     Dates: start: 20140305, end: 20140305
  2. IBUPROFEN [Concomitant]
  3. AMLODIPINE [Concomitant]
  4. ASPIRIN [Concomitant]
  5. LIPITOR [Concomitant]

REACTIONS (2)
  - Acute myocardial infarction [Recovered/Resolved]
  - Hypersensitivity [Recovered/Resolved]
